FAERS Safety Report 8997903 (Version 2)
Quarter: 2013Q1

REPORT INFORMATION
  Report Type: Spontaneous
  Country: IT (occurrence: IT)
  Receive Date: 20130104
  Receipt Date: 20130116
  Transmission Date: 20140127
  Serious: Yes (Hospitalization)
  Sender: FDA-Public Use
  Company Number: IT-BRISTOL-MYERS SQUIBB COMPANY-17247214

PATIENT
  Age: 48 Year
  Sex: Female

DRUGS (5)
  1. COUMADIN TABS 5 MG [Suspect]
     Dosage: LAST DOSE ON 30OCT2012
     Route: 048
     Dates: start: 20121016
  2. CARVEDILOL [Concomitant]
  3. NITROGLYCERINE [Concomitant]
  4. DELTACORTENE [Concomitant]
     Dosage: TABS
  5. LASIX [Concomitant]

REACTIONS (3)
  - Anaemia [Recovering/Resolving]
  - Haematoma [Recovering/Resolving]
  - Asthenia [Recovering/Resolving]
